FAERS Safety Report 5481383-0 (Version None)
Quarter: 2007Q4

REPORT INFORMATION
  Report Type: 
  Country: None (occurrence: None)
  Receive Date: 20071010
  Receipt Date: 20071009
  Transmission Date: 20080405
  Serious: Yes (Other)
  Sender: FDA-Public Use
  Company Number: A0685483A

PATIENT
  Sex: Female

DRUGS (8)
  1. ALLI [Suspect]
     Route: 048
     Dates: start: 20070807, end: 20070928
  2. INSULIN ASPART [Concomitant]
     Route: 058
  3. LANTUS [Concomitant]
     Route: 058
  4. METOPROLOL TARTRATE [Concomitant]
  5. PLAVIX [Concomitant]
  6. ZOCOR [Concomitant]
  7. KLOR-CON M [Concomitant]
     Route: 048
  8. LASIX [Concomitant]

REACTIONS (14)
  - ABDOMINAL DISTENSION [None]
  - ABDOMINAL PAIN [None]
  - ABDOMINAL TENDERNESS [None]
  - ADVERSE EVENT [None]
  - DYSPNOEA [None]
  - HEPATIC STEATOSIS [None]
  - HEPATITIS [None]
  - HEPATOMEGALY [None]
  - HUNGER [None]
  - NAUSEA [None]
  - OEDEMA PERIPHERAL [None]
  - PHARMACEUTICAL PRODUCT COMPLAINT [None]
  - SUFFOCATION FEELING [None]
  - WEIGHT INCREASED [None]
